FAERS Safety Report 18362082 (Version 1)
Quarter: 2020Q4

REPORT INFORMATION
  Report Type: Spontaneous
  Country: US (occurrence: US)
  Receive Date: 20201008
  Receipt Date: 20201008
  Transmission Date: 20210114
  Serious: No
  Sender: FDA-Public Use
  Company Number: US-ROMARKLABS-2020-US-000099

PATIENT
  Age: 28 Year
  Sex: Female

DRUGS (1)
  1. ALINIA [Suspect]
     Active Substance: NITAZOXANIDE
     Indication: BABESIOSIS
     Dosage: TAKE 1 TABLET BY MOUTH 2 TIMES DAILY FOR 30 DAYS
     Route: 048
     Dates: start: 202004, end: 202004

REACTIONS (3)
  - Weight decreased [Unknown]
  - Decreased appetite [Unknown]
  - Diarrhoea [Unknown]

NARRATIVE: CASE EVENT DATE: 202004
